FAERS Safety Report 25050900 (Version 2)
Quarter: 2025Q1

REPORT INFORMATION
  Report Type: Report from Study
  Country: US (occurrence: US)
  Receive Date: 20250307
  Receipt Date: 20250324
  Transmission Date: 20250408
  Serious: Yes (Death, Other)
  Sender: BAYER HEALTHCARE PHARMACEUTICALS INC.
  Company Number: US-BAYER-2025A031718

PATIENT
  Sex: Female

DRUGS (6)
  1. ADEMPAS [Suspect]
     Active Substance: RIOCIGUAT
     Indication: Pulmonary arterial hypertension
  2. ADEMPAS [Suspect]
     Active Substance: RIOCIGUAT
     Indication: Pulmonary arterial hypertension
     Dosage: 2.5 MG, TID
     Route: 048
     Dates: start: 202008
  3. WINREVAIR [Concomitant]
     Active Substance: SOTATERCEPT-CSRK
  4. OPSUMIT [Concomitant]
     Active Substance: MACITENTAN
  5. UPTRAVI [Concomitant]
     Active Substance: SELEXIPAG
  6. OXYGEN [Concomitant]
     Active Substance: OXYGEN

REACTIONS (4)
  - Cardiac arrest [Fatal]
  - Dyspnoea [Fatal]
  - Respiratory arrest [Fatal]
  - Epistaxis [None]
